FAERS Safety Report 7010895-3 (Version None)
Quarter: 2010Q3

REPORT INFORMATION
  Report Type: 
  Country: None (occurrence: None)
  Receive Date: 20100923
  Receipt Date: 20100923
  Transmission Date: 20110219
  Serious: Yes (Hospitalization)
  Sender: FDA-Public Use
  Company Number: None

PATIENT
  Sex: Male
  Weight: 102.5129 kg

DRUGS (2)
  1. DOXIL [Suspect]
     Indication: MULTIPLE MYELOMA
     Dosage: 63.90 IV
     Route: 042
     Dates: start: 20100826, end: 20100916
  2. VELCADE [Suspect]
     Indication: MULTIPLE MYELOMA
     Dosage: 2.77 IV
     Route: 042
     Dates: start: 20100823, end: 20100916

REACTIONS (4)
  - DEHYDRATION [None]
  - DIARRHOEA [None]
  - NAUSEA [None]
  - VOMITING [None]
